FAERS Safety Report 24128563 (Version 1)
Quarter: 2024Q3

REPORT INFORMATION
  Report Type: Spontaneous
  Country: US (occurrence: None)
  Receive Date: 20240723
  Receipt Date: 20240723
  Transmission Date: 20241016
  Serious: No
  Sender: Public
  Company Number: None

PATIENT
  Age: 49 Year
  Sex: Female
  Weight: 87.09 kg

DRUGS (3)
  1. BOTOX [Suspect]
     Active Substance: ONABOTULINUMTOXINA
     Indication: Facial spasm
     Dosage: FREQUENCY : AS DIRECTED;?
     Route: 058
     Dates: start: 202407
  2. BOTOX [Suspect]
     Active Substance: ONABOTULINUMTOXINA
     Indication: Crohn^s disease
  3. BOTOX [Suspect]
     Active Substance: ONABOTULINUMTOXINA
     Indication: Crohn^s disease

REACTIONS (1)
  - Colon operation [None]
